FAERS Safety Report 8235543 (Version 2)
Quarter: 2013Q2

REPORT INFORMATION
  Report Type: Report from Study
  Country: MX (occurrence: MX)
  Receive Date: 20111108
  Receipt Date: 20130621
  Transmission Date: 20140414
  Serious: Yes (Hospitalization)
  Sender: FDA-Public Use
  Company Number: PHHY2011MX96502

PATIENT
  Age: 23 Year
  Sex: Male

DRUGS (2)
  1. TRILEPTAL [Suspect]
     Indication: EPILEPSY
     Dosage: 1 DF, Q12H
     Route: 048
     Dates: end: 2009
  2. TRILEPTAL [Suspect]
     Dosage: 2 DF, Q12H
     Route: 048
     Dates: start: 2009

REACTIONS (2)
  - Neoplasm [Unknown]
  - Convulsion [Recovered/Resolved]
